FAERS Safety Report 6209881-2 (Version None)
Quarter: 2009Q2

REPORT INFORMATION
  Report Type: 
  Country: None (occurrence: None)
  Receive Date: 20090528
  Receipt Date: 20090528
  Transmission Date: 20091009
  Serious: Yes (Life-Threatening, Hospitalization)
  Sender: FDA-Public Use
  Company Number: None

PATIENT
  Age: 65 Year
  Sex: Male
  Weight: 125.83 kg

DRUGS (2)
  1. SUNITINIB [Suspect]
     Indication: NEOPLASM MALIGNANT
     Dosage: 50 MG EVERY DAY PO
     Route: 048
     Dates: start: 20090303, end: 20090331
  2. SUNITINIB [Suspect]
     Indication: PALLIATIVE CARE
     Dosage: 50 MG EVERY DAY PO
     Route: 048
     Dates: start: 20090303, end: 20090331

REACTIONS (11)
  - ABDOMINAL PAIN [None]
  - BLOOD ALBUMIN DECREASED [None]
  - CHRONIC OBSTRUCTIVE PULMONARY DISEASE [None]
  - CONDITION AGGRAVATED [None]
  - GENERALISED OEDEMA [None]
  - GOUT [None]
  - OEDEMA PERIPHERAL [None]
  - PROTEINURIA [None]
  - SPUTUM DISCOLOURED [None]
  - WAIST CIRCUMFERENCE INCREASED [None]
  - WEIGHT INCREASED [None]
